FAERS Safety Report 6780266-3 (Version None)
Quarter: 2010Q2

REPORT INFORMATION
  Report Type: 
  Country: None (occurrence: None)
  Receive Date: 20100618
  Receipt Date: 20100608
  Transmission Date: 20101027
  Serious: Yes (Other)
  Sender: FDA-Public Use
  Company Number: ZA-ABBOTT-10P-143-0649600-00

PATIENT
  Sex: Male

DRUGS (5)
  1. HUMIRA [Suspect]
     Indication: CROHN'S DISEASE
     Dosage: 60 MG LOADING DOSE: 40MG: 4 DOSES STAT
     Route: 058
     Dates: start: 20100528, end: 20100528
  2. CORTICOSTEROIDS [Concomitant]
     Indication: CROHN'S DISEASE
     Dosage: INTERMITTENT THERAPY PRN
  3. AZATHIOPRINE [Concomitant]
     Indication: CROHN'S DISEASE
     Route: 048
  4. ASACOL [Concomitant]
     Indication: CROHN'S DISEASE
  5. FOLIC ACID [Concomitant]
     Indication: CROHN'S DISEASE
     Route: 048

REACTIONS (1)
  - MIGRAINE [None]
